FAERS Safety Report 8087041-0 (Version None)
Quarter: 2012Q1

REPORT INFORMATION
  Report Type: 
  Country: None (occurrence: None)
  Receive Date: 20120128
  Receipt Date: 20110419
  Transmission Date: 20120608
  Serious: No
  Sender: FDA-Public Use
  Company Number: US-ABBOTT-11P-163-0720938-00

PATIENT
  Age: 63 Year
  Sex: Female
  Weight: 90.8 kg

DRUGS (3)
  1. HUMIRA [Suspect]
     Indication: RHEUMATOID ARTHRITIS
     Dates: start: 20090401
  2. TRAMADOL HCL [Concomitant]
     Indication: NEUROPATHY PERIPHERAL
  3. NEURONTIN [Concomitant]
     Indication: NEUROPATHY PERIPHERAL

REACTIONS (10)
  - MIGRAINE [None]
  - DRUG DOSE OMISSION [None]
  - HEADACHE [None]
  - VIRAL INFECTION [None]
  - NAUSEA [None]
  - VOMITING [None]
  - COUGH [None]
  - DYSPHONIA [None]
  - ILL-DEFINED DISORDER [None]
  - RHINORRHOEA [None]
